FAERS Safety Report 22217323 (Version 2)
Quarter: 2023Q2

REPORT INFORMATION
  Report Type: Other
  Country: JP (occurrence: JP)
  Receive Date: 20230417
  Receipt Date: 20230503
  Transmission Date: 20230722
  Serious: No
  Sender: FDA-Public Use
  Company Number: JP-CHUGAI-2023013309

PATIENT
  Age: 44 Year
  Sex: Male

DRUGS (2)
  1. ROZLYTREK [Suspect]
     Active Substance: ENTRECTINIB
     Indication: Salivary gland neoplasm
     Dosage: 600 MILLIGRAM, QD
     Route: 048
     Dates: start: 202101
  2. ROZLYTREK [Suspect]
     Active Substance: ENTRECTINIB
     Dosage: 400 MILLIGRAM, QD
     Route: 048

REACTIONS (5)
  - Blood creatinine increased [Recovering/Resolving]
  - Fatigue [Recovering/Resolving]
  - Taste disorder [Recovering/Resolving]
  - Balance disorder [Recovering/Resolving]
  - Weight increased [Recovering/Resolving]
